FAERS Safety Report 5650883-2 (Version None)
Quarter: 2008Q1

REPORT INFORMATION
  Report Type: 
  Country: None (occurrence: None)
  Receive Date: 20080305
  Receipt Date: 20080225
  Transmission Date: 20080703
  Serious: Yes (Other)
  Sender: FDA-Public Use
  Company Number: GB-BAYER-200810511BNE

PATIENT
  Age: 20 Year
  Sex: Female

DRUGS (2)
  1. CLOTRIMAZOLE [Suspect]
     Indication: TINEA INFECTION
     Route: 061
     Dates: start: 20080127, end: 20080128
  2. CERAZETTE (DESOGESTREL) [Concomitant]
     Indication: CONTRACEPTION
     Route: 048
     Dates: start: 20070801

REACTIONS (2)
  - APPLICATION SITE REACTION [None]
  - MUSCLE SPASMS [None]
